FAERS Safety Report 6311510-4 (Version None)
Quarter: 2009Q3

REPORT INFORMATION
  Report Type: 
  Country: None (occurrence: None)
  Receive Date: 20090817
  Receipt Date: 20090807
  Transmission Date: 20100115
  Serious: Yes (Hospitalization)
  Sender: FDA-Public Use
  Company Number: PHHY2009JP23120

PATIENT
  Age: 73 Year
  Sex: Female

DRUGS (3)
  1. LOCHOL [Suspect]
     Indication: DYSLIPIDAEMIA
     Dosage: UNK
     Route: 048
     Dates: end: 20090621
  2. CEFDINIR [Concomitant]
     Dosage: 300 MG, UNK
     Route: 048
     Dates: start: 20090529, end: 20090529
  3. FELBINAC [Concomitant]
     Route: 061

REACTIONS (2)
  - LUMBAR VERTEBRAL FRACTURE [None]
  - POLLAKIURIA [None]
